FAERS Safety Report 5402751-9 (Version None)
Quarter: 2007Q3

REPORT INFORMATION
  Report Type: 
  Country: None (occurrence: None)
  Receive Date: 20070730
  Receipt Date: 20070730
  Transmission Date: 20080115
  Serious: Yes (Hospitalization)
  Sender: FDA-Public Use
  Company Number: None

PATIENT
  Sex: Female
  Weight: 84.09 kg

DRUGS (4)
  1. CISPLATIN [Suspect]
     Dosage: 95 MG
  2. DOXORUBICIN HYDROCHLORIDE [Suspect]
     Dosage: 86 MG
  3. G-CSF (FILGRASTIM, AMGEN) [Suspect]
     Dosage: 6 MG
  4. TAXOL [Suspect]
     Dosage: 304 MG

REACTIONS (20)
  - ATRIAL FLUTTER [None]
  - BLOOD PRESSURE DECREASED [None]
  - CANDIDURIA [None]
  - CULTURE URINE POSITIVE [None]
  - DYSPNOEA [None]
  - ESCHERICHIA INFECTION [None]
  - GASTROINTESTINAL HAEMORRHAGE [None]
  - GOITRE [None]
  - HAEMOGLOBIN DECREASED [None]
  - HYPOTENSION [None]
  - HYPOTHYROIDISM [None]
  - LYMPHOEDEMA [None]
  - OESOPHAGITIS [None]
  - PULMONARY EMBOLISM [None]
  - RENAL FAILURE ACUTE [None]
  - SUPRAVENTRICULAR TACHYCARDIA [None]
  - THROMBOCYTOPENIA [None]
  - THYROID MASS [None]
  - ULCER [None]
  - VENA CAVA THROMBOSIS [None]
